FAERS Safety Report 9632818 (Version 2)
Quarter: 2015Q1

REPORT INFORMATION
  Report Type: Spontaneous
  Country: US (occurrence: US)
  Receive Date: 20131018
  Receipt Date: 20150108
  Transmission Date: 20150721
  Serious: No
  Sender: FDA-Public Use
  Company Number: AL-ASTRAZENECA-2013SE62673

PATIENT
  Sex: Female
  Weight: 63.5 kg

DRUGS (4)
  1. CRESTOR [Suspect]
     Active Substance: ROSUVASTATIN CALCIUM
     Indication: BLOOD CHOLESTEROL INCREASED
     Route: 048
     Dates: end: 201404
  2. BYETTA [Concomitant]
     Active Substance: EXENATIDE
     Indication: BLOOD CHOLESTEROL
     Route: 048
     Dates: start: 201409
  3. ADVAIR HFA [Concomitant]
     Active Substance: FLUTICASONE PROPIONATE\SALMETEROL XINAFOATE
     Indication: ASTHMA
     Dosage: 500/50 TWICE DAILY
     Route: 055
  4. HYDROCORTISONE CREAM [Concomitant]
     Active Substance: HYDROCORTISONE

REACTIONS (8)
  - Photosensitivity reaction [Unknown]
  - Erythema [Not Recovered/Not Resolved]
  - Photosensitivity reaction [Not Recovered/Not Resolved]
  - Burning sensation [Not Recovered/Not Resolved]
  - Pruritus [Recovered/Resolved]
  - Rash macular [Not Recovered/Not Resolved]
  - Blood alkaline phosphatase increased [Unknown]
  - Rash papular [Recovered/Resolved]

NARRATIVE: CASE EVENT DATE: 2013
